FAERS Safety Report 11552561 (Version 1)
Quarter: 2015Q3

REPORT INFORMATION
  Report Type: Spontaneous
  Country: US (occurrence: None)
  Receive Date: 20150924
  Receipt Date: 20150924
  Transmission Date: 20151125
  Serious: Yes (Other)
  Sender: FDA-Public Use
  Company Number: None

PATIENT
  Age: 67 Year
  Sex: Female
  Weight: 87.54 kg

DRUGS (14)
  1. NOVOLOG [Suspect]
     Active Substance: INSULIN ASPART
     Indication: TYPE 2 DIABETES MELLITUS
     Dosage: 15-15-20 THREE TIMES DAILY INTO THE MUSCLE
     Route: 030
     Dates: start: 20150722, end: 20150723
  2. VITAMIN C [Concomitant]
     Active Substance: ASCORBIC ACID
  3. HUMALOG [Suspect]
     Active Substance: INSULIN LISPRO
     Indication: TYPE 2 DIABETES MELLITUS
     Dosage: 20-15-30 THREE TIMES DAILY INTO THE MUSCLE
     Route: 030
     Dates: start: 20150503, end: 20150622
  4. MAGNESIUM [Concomitant]
     Active Substance: MAGNESIUM
  5. L-ARGININE [Concomitant]
     Active Substance: ARGININE
  6. FOLIC ACID. [Concomitant]
     Active Substance: FOLIC ACID
  7. ZYRTEC [Concomitant]
     Active Substance: CETIRIZINE HYDROCHLORIDE
  8. RED RICE YEAST [Concomitant]
     Active Substance: DIETARY SUPPLEMENT
  9. LANTUS SOLOSTAR [Concomitant]
     Active Substance: INSULIN GLARGINE
  10. SYMLIN [Concomitant]
     Active Substance: PRAMLINTIDE ACETATE
  11. VITAMIN D [Concomitant]
     Active Substance: CHOLECALCIFEROL
  12. NORVASC [Concomitant]
     Active Substance: AMLODIPINE BESYLATE
  13. ZETIA [Concomitant]
     Active Substance: EZETIMIBE
  14. POTTASSIUM [Concomitant]

REACTIONS (7)
  - Blood glucose increased [None]
  - Rash [None]
  - Pruritus [None]
  - Scratch [None]
  - Rash generalised [None]
  - Hypoglycaemia [None]
  - Throat tightness [None]

NARRATIVE: CASE EVENT DATE: 20150622
